FAERS Safety Report 15082672 (Version 4)
Quarter: 2019Q2

REPORT INFORMATION
  Report Type: Spontaneous
  Country: IT (occurrence: IT)
  Receive Date: 20180628
  Receipt Date: 20190606
  Transmission Date: 20190711
  Serious: Yes (Life-Threatening, Hospitalization, Other)
  Sender: FDA-Public Use
  Company Number: IT-PFIZER INC-2018261382

PATIENT
  Age: 70 Year
  Sex: Male

DRUGS (4)
  1. ZOLPIDEM [Suspect]
     Active Substance: ZOLPIDEM\ZOLPIDEM TARTRATE
     Indication: SLEEP DISORDER
  2. ALPRAZOLAM. [Suspect]
     Active Substance: ALPRAZOLAM
     Indication: SLEEP DISORDER
     Dosage: 0.5 MG, DAILY
     Route: 048
  3. ZOLPIDEM [Suspect]
     Active Substance: ZOLPIDEM\ZOLPIDEM TARTRATE
     Indication: ANXIETY
     Dosage: 10 MG, DAILY
  4. ALPRAZOLAM. [Suspect]
     Active Substance: ALPRAZOLAM
     Indication: ANXIETY
     Dosage: A TOTAL OF 22.5 MG
     Route: 048

REACTIONS (10)
  - Pulmonary embolism [Recovering/Resolving]
  - Coma [Recovered/Resolved]
  - Dehydration [Unknown]
  - Overdose [Unknown]
  - Renal impairment [Unknown]
  - Suicide attempt [Unknown]
  - Brachial plexus injury [Unknown]
  - Delusion [Recovered/Resolved]
  - Immobilisation prolonged [Unknown]
  - Hallucination [Recovered/Resolved]
